FAERS Safety Report 4704763-7 (Version None)
Quarter: 2005Q2

REPORT INFORMATION
  Report Type: 
  Country: None (occurrence: None)
  Receive Date: 20050630
  Receipt Date: 20050615
  Transmission Date: 20051028
  Serious: Yes (Hospitalization)
  Sender: FDA-Public Use
  Company Number: CERZ-10923

PATIENT
  Age: 11 Month
  Sex: Male
  Weight: 5.8 kg

DRUGS (2)
  1. CEREZYME [Suspect]
     Indication: GAUCHER'S DISEASE
     Dosage: 600 UNITS Q2WKS IV
     Route: 042
     Dates: start: 20041006
  2. MIGLUSTAT [Concomitant]

REACTIONS (8)
  - APNOEA [None]
  - BETA HAEMOLYTIC STREPTOCOCCAL INFECTION [None]
  - CENTRAL LINE INFECTION [None]
  - CYANOSIS [None]
  - ENTEROBACTER BACTERAEMIA [None]
  - ENTEROCOCCAL BACTERAEMIA [None]
  - MUSCULOSKELETAL STIFFNESS [None]
  - RESPIRATORY ARREST [None]
